FAERS Safety Report 5727619-X (Version None)
Quarter: 2008Q2

REPORT INFORMATION
  Report Type: 
  Country: None (occurrence: None)
  Receive Date: 20080505
  Receipt Date: 20080430
  Transmission Date: 20081010
  Serious: Yes (Hospitalization)
  Sender: FDA-Public Use
  Company Number: US-TYCO HEALTHCARE/MALLINCKRODT-T200800699

PATIENT

DRUGS (6)
  1. SODIUM IODIDE I 131 [Suspect]
     Indication: THYROID THERAPY
     Dosage: 100 MCI, SINGLE
     Route: 048
     Dates: start: 20070126, end: 20070126
  2. ASPIRIN [Concomitant]
     Route: 048
  3. METOPROLOL TARTRATE [Concomitant]
     Route: 048
  4. LIPITOR [Concomitant]
     Route: 048
  5. HYDROCHLOROTHIAZIDE [Concomitant]
     Route: 048
  6. FOSAMAX [Concomitant]
     Route: 048

REACTIONS (8)
  - AGEUSIA [None]
  - CHEST PAIN [None]
  - MUSCULOSKELETAL DISCOMFORT [None]
  - PALPITATIONS [None]
  - SALIVARY GLAND DISORDER [None]
  - SIALOADENITIS [None]
  - SWELLING [None]
  - TONGUE DISCOLOURATION [None]
